FAERS Safety Report 18537754 (Version 2)
Quarter: 2023Q1

REPORT INFORMATION
  Report Type: Spontaneous
  Country: SE (occurrence: SE)
  Receive Date: 20201124
  Receipt Date: 20230106
  Transmission Date: 20230417
  Serious: Yes (Other)
  Sender: FDA-Public Use
  Company Number: SE-ALLERGAN-2044464US

PATIENT
  Age: 58 Year
  Sex: Female
  Weight: 81 kg

DRUGS (7)
  1. CARBIDOPA\LEVODOPA [Suspect]
     Active Substance: CARBIDOPA\LEVODOPA
     Indication: Parkinson^s disease
     Dosage: 100 ML
     Route: 050
     Dates: start: 20140609
  2. CARBIDOPA\LEVODOPA [Suspect]
     Active Substance: CARBIDOPA\LEVODOPA
     Dosage: CURRENT DOSAGE: MORNING DOSE: 5ML, CONTINUOUS DOSE 07AM - 05PM: 6.5ML/H, INTESTINAL GEL?LAST ADMI...
     Dates: start: 20220615
  3. CARBIDOPA\LEVODOPA [Suspect]
     Active Substance: CARBIDOPA\LEVODOPA
     Dosage: CURRENT DOSAGE: THERAPY DURATION: WENT TO 24 HOURS, INTESTINAL GEL?FIRST ADMIN DATE- 2022?LAST AD...
  4. CARBIDOPA\LEVODOPA [Suspect]
     Active Substance: CARBIDOPA\LEVODOPA
     Dosage: CURRENT DOSAGE: CONTINUOUS DOSE 05PM - 10PM: 7.5ML/H, CONTINUOUS DOSE NIGHT: 6.0ML/H, INTESTINAL ...
  5. CARBIDOPA\LEVODOPA [Suspect]
     Active Substance: CARBIDOPA\LEVODOPA
     Dosage: THERAPY DURATION: REMAINED AT 16H?FIRST ADMIN DATE- 2022?LAST ADMIN DATE- 2022
  6. CARBIDOPA\LEVODOPA [Suspect]
     Active Substance: CARBIDOPA\LEVODOPA
     Dosage: CURRENT DOSAGE: CONTINUOUS DOSE 07AM - 05PM: 7.0ML/H, EXTRA DOSE: 2.0ML, INTESTINAL GEL
     Dates: start: 20221201
  7. BOTOX [Suspect]
     Active Substance: ONABOTULINUMTOXINA
     Indication: Product used for unknown indication
     Dosage: SINGLE
     Route: 065

REACTIONS (21)
  - Kyphosis [Unknown]
  - Off label use [Unknown]
  - Mobility decreased [Not Recovered/Not Resolved]
  - Musculoskeletal disorder [Unknown]
  - Abdominal discomfort [Not Recovered/Not Resolved]
  - Back pain [Not Recovered/Not Resolved]
  - Weight increased [Unknown]
  - Gait disturbance [Not Recovered/Not Resolved]
  - Abdominal pain [Not Recovered/Not Resolved]
  - Pain [Recovered/Resolved]
  - Drug ineffective for unapproved indication [Unknown]
  - Weight decreased [Recovered/Resolved]
  - Musculoskeletal discomfort [Not Recovered/Not Resolved]
  - Kyphosis [Unknown]
  - Stoma site infection [Not Recovered/Not Resolved]
  - Fall [Recovered/Resolved]
  - Stoma site erythema [Not Recovered/Not Resolved]
  - Abdominal rigidity [Not Recovered/Not Resolved]
  - Weight increased [Recovered/Resolved]
  - Pain [Unknown]
  - Muscular weakness [Not Recovered/Not Resolved]

NARRATIVE: CASE EVENT DATE: 20180101
